FAERS Safety Report 18038521 (Version 1)
Quarter: 2020Q3

REPORT INFORMATION
  Report Type: Spontaneous
  Country: US (occurrence: US)
  Receive Date: 20200717
  Receipt Date: 20200717
  Transmission Date: 20201103
  Serious: No
  Sender: FDA-Public Use
  Company Number: US-PFIZER INC-2020272671

PATIENT
  Age: 64 Year
  Sex: Female

DRUGS (2)
  1. XELJANZ XR [Suspect]
     Active Substance: TOFACITINIB CITRATE
     Indication: RHEUMATOID ARTHRITIS
     Dosage: 11 MG, DAILY
     Route: 048
     Dates: start: 20200708
  2. LEFLUNOMIDE. [Concomitant]
     Active Substance: LEFLUNOMIDE
     Dosage: UNK

REACTIONS (7)
  - Oropharyngeal pain [Unknown]
  - Sinus pain [Unknown]
  - Fatigue [Unknown]
  - Abdominal pain upper [Unknown]
  - Headache [Unknown]
  - Myalgia [Unknown]
  - Hypokinesia [Unknown]

NARRATIVE: CASE EVENT DATE: 202007
